FAERS Safety Report 7110757-7 (Version None)
Quarter: 2010Q4

REPORT INFORMATION
  Report Type: 
  Country: None (occurrence: None)
  Receive Date: 20101118
  Receipt Date: 20101110
  Transmission Date: 20110411
  Serious: Yes (Hospitalization)
  Sender: FDA-Public Use
  Company Number: B0683751A

PATIENT
  Sex: Male
  Weight: 20 kg

DRUGS (1)
  1. VENTOLIN [Suspect]
     Indication: RALES
     Dosage: 5MG TWICE PER DAY
     Route: 055
     Dates: start: 20101024, end: 20101024

REACTIONS (7)
  - ELECTROCARDIOGRAM NORMAL [None]
  - ELECTROCARDIOGRAM T WAVE AMPLITUDE DECREASED [None]
  - HYPOKALAEMIA [None]
  - HYPOTENSION [None]
  - MALAISE [None]
  - PALLOR [None]
  - VOMITING [None]
